FAERS Safety Report 7204441-9 (Version None)
Quarter: 2010Q4

REPORT INFORMATION
  Report Type: 
  Country: None (occurrence: None)
  Receive Date: 20101230
  Receipt Date: 20101221
  Transmission Date: 20110411
  Serious: Yes (Hospitalization, Other)
  Sender: FDA-Public Use
  Company Number: US-JNJFOC-20100705097

PATIENT
  Sex: Female

DRUGS (2)
  1. LEVAQUIN [Suspect]
     Indication: BRONCHITIS
     Route: 048
  2. METHYLPREDNISOLONE [Suspect]
     Indication: BRONCHITIS
     Route: 065

REACTIONS (8)
  - ARTHRALGIA [None]
  - BACK PAIN [None]
  - FATIGUE [None]
  - LIGAMENT RUPTURE [None]
  - NECK PAIN [None]
  - PAIN [None]
  - PAIN IN EXTREMITY [None]
  - TENDON RUPTURE [None]
